FAERS Safety Report 7559378-2 (Version None)
Quarter: 2011Q2

REPORT INFORMATION
  Report Type: 
  Country: None (occurrence: None)
  Receive Date: 20110617
  Receipt Date: 20110617
  Transmission Date: 20111010
  Serious: Yes (Hospitalization)
  Sender: FDA-Public Use
  Company Number: None

PATIENT
  Age: 77 Year
  Sex: Male
  Weight: 105 kg

DRUGS (1)
  1. CARBAMAZEPINE [Suspect]
     Indication: DIABETIC NEUROPATHY
     Dosage: 400 MG BID PO
     Route: 048
     Dates: start: 19960112

REACTIONS (2)
  - MYOCLONUS [None]
  - DYSARTHRIA [None]
